FAERS Safety Report 6415560-9 (Version None)
Quarter: 2009Q4

REPORT INFORMATION
  Report Type: 
  Country: None (occurrence: None)
  Receive Date: 20091022
  Receipt Date: 20091012
  Transmission Date: 20100525
  Serious: Yes (Other)
  Sender: FDA-Public Use
  Company Number: 231872J09USA

PATIENT
  Age: 42 Year
  Sex: Female
  Weight: 99 kg

DRUGS (5)
  1. REBIF [Suspect]
     Indication: MULTIPLE SCLEROSIS
     Dosage: 44 MCG, 3 IN 1 WEEKS, SUBCUTANEOUS
     Route: 058
     Dates: start: 20080221
  2. PROZAC [Concomitant]
  3. XANAX [Concomitant]
  4. TRAMADOL HCL [Concomitant]
  5. BACLOFEN [Concomitant]

REACTIONS (3)
  - HERNIA [None]
  - HYPERTENSION [None]
  - NERVE INJURY [None]
